FAERS Safety Report 7865209-3 (Version None)
Quarter: 2011Q4

REPORT INFORMATION
  Report Type: 
  Country: None (occurrence: None)
  Receive Date: 20111028
  Receipt Date: 20101101
  Transmission Date: 20120403
  Serious: No
  Sender: FDA-Public Use
  Company Number: US-GLAXOSMITHKLINE-A0889980A

PATIENT
  Age: 72 Year
  Sex: Male

DRUGS (13)
  1. ELAVIL [Concomitant]
  2. PROAIR HFA [Concomitant]
  3. ADVAIR DISKUS 100/50 [Suspect]
     Indication: ASTHMA
     Dosage: 1PUFF TWICE PER DAY
     Route: 055
     Dates: start: 20040101
  4. IPRATROPIUM BROMIDE [Concomitant]
  5. SPIRIVA [Concomitant]
  6. TRAZODONE HYDROCHLORIDE [Concomitant]
  7. VICODIN [Concomitant]
  8. SERAX [Concomitant]
  9. DIOVAN [Concomitant]
  10. ZOCOR [Concomitant]
  11. REMERON [Concomitant]
  12. PROTONIX [Concomitant]
  13. ASPIRIN [Concomitant]

REACTIONS (2)
  - PRODUCT QUALITY ISSUE [None]
  - DYSPNOEA [None]
